FAERS Safety Report 12548268 (Version 1)
Quarter: 2016Q3

REPORT INFORMATION
  Report Type: Spontaneous
  Country: US (occurrence: None)
  Receive Date: 20160711
  Receipt Date: 20160711
  Transmission Date: 20161109
  Serious: No
  Sender: FDA-Public Use
  Company Number: None

PATIENT
  Age: 14 Year
  Sex: Female
  Weight: 61.24 kg

DRUGS (1)
  1. CLINDAGEL [Suspect]
     Active Substance: CLINDAMYCIN PHOSPHATE
     Indication: FOLLICULITIS
     Dosage: APPLIED TO A SURFCE, USUALLY THE SKIN
     Dates: start: 20160701, end: 20160707

REACTIONS (1)
  - Diarrhoea [None]

NARRATIVE: CASE EVENT DATE: 20160701
